FAERS Safety Report 5799572-4 (Version None)
Quarter: 2008Q3

REPORT INFORMATION
  Report Type: 
  Country: None (occurrence: None)
  Receive Date: 20080701
  Receipt Date: 20080701
  Transmission Date: 20090109
  Serious: No
  Sender: FDA-Public Use
  Company Number: None

PATIENT
  Age: 11 Year
  Sex: Female
  Weight: 52.1637 kg

DRUGS (2)
  1. NASONEX [Suspect]
     Indication: ASTHMA
     Dosage: 2 SPRAYS IN NOSTRALS TWICE A DAY
     Route: 045
     Dates: start: 20070901, end: 20080301
  2. NASONEX [Suspect]
     Indication: MULTIPLE ALLERGIES
     Dosage: 2 SPRAYS IN NOSTRALS TWICE A DAY
     Route: 045
     Dates: start: 20070901, end: 20080301

REACTIONS (2)
  - APHASIA [None]
  - DYSTONIA [None]
